FAERS Safety Report 16800480 (Version 1)
Quarter: 2019Q3

REPORT INFORMATION
  Report Type: Report from Study
  Country: US (occurrence: US)
  Receive Date: 20190912
  Receipt Date: 20190912
  Transmission Date: 20191005
  Serious: Yes (Death)
  Sender: FDA-Public Use
  Company Number: US-PFIZER INC-2019099124

PATIENT
  Age: 82 Year
  Sex: Female

DRUGS (2)
  1. LETROZOLE. [Concomitant]
     Active Substance: LETROZOLE
     Dosage: UNK
  2. IBRANCE [Suspect]
     Active Substance: PALBOCICLIB
     Indication: BREAST CANCER FEMALE
     Dosage: 125 MG, CYCLIC (DAILY FOR 21 DAYS ON AND THEN 7 DAYS OFF)
     Route: 048
     Dates: start: 20190224, end: 20190823

REACTIONS (13)
  - Faeces soft [Unknown]
  - Blood pressure increased [Recovering/Resolving]
  - Decreased appetite [Recovering/Resolving]
  - Death [Fatal]
  - Nausea [Recovered/Resolved]
  - Nasal dryness [Not Recovered/Not Resolved]
  - Dry throat [Unknown]
  - Taste disorder [Not Recovered/Not Resolved]
  - Dry mouth [Not Recovered/Not Resolved]
  - Cough [Unknown]
  - Fatigue [Not Recovered/Not Resolved]
  - Dizziness [Recovered/Resolved]
  - Weight decreased [Unknown]

NARRATIVE: CASE EVENT DATE: 2019
